FAERS Safety Report 4842203-8 (Version None)
Quarter: 2005Q4

REPORT INFORMATION
  Report Type: 
  Country: None (occurrence: None)
  Receive Date: 20051129
  Receipt Date: 20051117
  Transmission Date: 20060501
  Serious: Yes (Other)
  Sender: FDA-Public Use
  Company Number: 208057

PATIENT
  Age: 20 Year
  Sex: Female

DRUGS (2)
  1. RITUXAN [Suspect]
     Indication: IMMUNOSUPPRESSANT DRUG THERAPY
     Dosage: SEE IMAGE
     Route: 042
     Dates: start: 20040622, end: 20040622
  2. RITUXAN [Suspect]
     Indication: IMMUNOSUPPRESSANT DRUG THERAPY
     Dosage: SEE IMAGE
     Route: 042
     Dates: start: 20040628, end: 20040628

REACTIONS (7)
  - BLOOD URIC ACID INCREASED [None]
  - DISSEMINATED INTRAVASCULAR COAGULATION [None]
  - GASTROINTESTINAL OEDEMA [None]
  - PANCYTOPENIA [None]
  - SEPSIS [None]
  - THERAPY NON-RESPONDER [None]
  - URINE URIC ACID INCREASED [None]
